FAERS Safety Report 10892478 (Version 1)
Quarter: 2015Q1

REPORT INFORMATION
  Report Type: Spontaneous
  Country: US (occurrence: US)
  Receive Date: 20150306
  Receipt Date: 20150306
  Transmission Date: 20150721
  Serious: Yes (Other)
  Sender: FDA-Public Use
  Company Number: US-BRISTOL-MYERS SQUIBB COMPANY-BMS-2014-004950

PATIENT
  Age: 25 Year
  Sex: Female

DRUGS (4)
  1. ABILIFY MAINTENA [Concomitant]
     Active Substance: ARIPIPRAZOLE
     Indication: SCHIZOPHRENIA
     Dosage: 200 MG, UNK EVERY 28 DAYS
     Route: 030
     Dates: start: 201410, end: 201410
  2. ATIVAN [Concomitant]
     Active Substance: LORAZEPAM
  3. ABILIFY [Suspect]
     Active Substance: ARIPIPRAZOLE
     Indication: SCHIZOPHRENIA
     Dosage: UNK
     Route: 048
     Dates: end: 2014
  4. LAMICTAL [Concomitant]
     Active Substance: LAMOTRIGINE
     Indication: SEIZURE

REACTIONS (3)
  - Prescribed underdose [Unknown]
  - Seizure [Unknown]
  - Dyskinesia [Unknown]
